FAERS Safety Report 24309848 (Version 1)
Quarter: 2024Q3

REPORT INFORMATION
  Report Type: Spontaneous
  Country: GB (occurrence: GB)
  Receive Date: 20240912
  Receipt Date: 20240912
  Transmission Date: 20241017
  Serious: Yes (Hospitalization, Other)
  Sender: CELLTRION
  Company Number: GB-CELLTRION INC.-2024GB021384

PATIENT

DRUGS (1)
  1. YUFLYMA [Suspect]
     Active Substance: ADALIMUMAB-AATY
     Indication: Ankylosing spondylitis
     Dosage: 40MG PEN
     Route: 058
     Dates: start: 202401

REACTIONS (1)
  - Hyperthyroidism [Unknown]
